FAERS Safety Report 7230920-4 (Version None)
Quarter: 2011Q1

REPORT INFORMATION
  Report Type: 
  Country: None (occurrence: None)
  Receive Date: 20110118
  Receipt Date: 20110112
  Transmission Date: 20110831
  Serious: Yes (Death, Hospitalization)
  Sender: FDA-Public Use
  Company Number: DE-ROCHE-746862

PATIENT
  Sex: Female
  Weight: 71 kg

DRUGS (10)
  1. CONCOR 5 PLUS [Concomitant]
     Dates: end: 20110109
  2. LASIX [Concomitant]
     Dates: end: 20110109
  3. CAPECITABINE [Suspect]
     Indication: BREAST CANCER
     Dosage: DOSE:1000 MG/M2 TWICE DAILY, ORAL, DAYS 1-14 (AS PER PROTOCOL)LAST DOSE PRIOR TO SAE ON 22 OCT 2010
     Route: 065
     Dates: start: 20100921
  4. PLAVIX [Concomitant]
     Dates: end: 20110109
  5. ENALAPRIL [Concomitant]
     Dates: end: 20110109
  6. ORACEFAL [Concomitant]
     Dates: end: 20110109
  7. PANTOZOL [Concomitant]
     Dates: end: 20110109
  8. ALLOPURINOL [Concomitant]
     Dates: end: 20110109
  9. BEVACIZUMAB [Suspect]
     Indication: BREAST CANCER
     Dosage: LAST DOSE PRIOR TO SAE: 15 NOV 2010.  ON DAY 1(TAKEN AS PER PROTOCOL)
     Route: 065
     Dates: start: 20100921
  10. VINORELBINE [Suspect]
     Indication: BREAST CANCER
     Dosage: LAST DOSE PRIOR TO SAE:23 NOV 2010.DOSE AS PER PROTOCOL.
     Route: 065
     Dates: start: 20100921

REACTIONS (4)
  - SEPSIS [None]
  - RENAL FAILURE [None]
  - PULMONARY EMBOLISM [None]
  - ASTHENIA [None]
